FAERS Safety Report 21298125 (Version 1)
Quarter: 2022Q3

REPORT INFORMATION
  Report Type: Spontaneous
  Country: GB (occurrence: GB)
  Receive Date: 20220906
  Receipt Date: 20220906
  Transmission Date: 20221027
  Serious: Yes (Other)
  Sender: FDA-Public Use
  Company Number: None

PATIENT
  Age: 61 Year
  Sex: Female
  Weight: 44 kg

DRUGS (15)
  1. CLARITHROMYCIN [Suspect]
     Active Substance: CLARITHROMYCIN
     Indication: Chronic obstructive pulmonary disease
     Dosage: 250 MILLIGRAM
     Route: 065
     Dates: start: 20220830
  2. BUMETANIDE [Concomitant]
     Active Substance: BUMETANIDE
     Dosage: 1 DOSAGE FORM, QD (EACH MORNING)
     Route: 065
     Dates: start: 20211230, end: 20220725
  3. CALCEOS [Concomitant]
     Active Substance: CALCIUM CARBONATE\CHOLECALCIFEROL
     Dosage: 1 DOSAGE FORM, BID
     Route: 065
     Dates: start: 20211019
  4. CANDESARTAN [Concomitant]
     Active Substance: CANDESARTAN
     Dosage: 1 DOSAGE FORM, QD
     Route: 065
     Dates: start: 20220315, end: 20220725
  5. BECLOMETHASONE DIPROPIONATE [Concomitant]
     Active Substance: BECLOMETHASONE DIPROPIONATE
     Dosage: 2 DOSAGE FORM, BID
     Route: 055
     Dates: start: 20220629
  6. DIAZEPAM [Concomitant]
     Active Substance: DIAZEPAM
     Dosage: 1 DOSAGE FORM, BID (TO BE TAKEN TWICE DAILY.TO BE TAKEN THREE TIMES DAILY)
     Route: 065
     Dates: start: 20220823
  7. DOXYCYCLINE [Concomitant]
     Active Substance: DOXYCYCLINE
     Dosage: 1 DOSAGE FORM, QD (TWO NOW THEN ONE DAILY)
     Route: 065
     Dates: start: 20220826
  8. MONTELUKAST [Concomitant]
     Active Substance: MONTELUKAST SODIUM
     Dosage: 1 DOSAGE FORM, QD (AT NIGHT)
     Route: 065
     Dates: start: 20211215
  9. MORPHINE SULFATE [Concomitant]
     Active Substance: MORPHINE SULFATE
     Dosage: 2.5 MILLILITER, PRN (QDS)
     Route: 065
     Dates: start: 20220810, end: 20220817
  10. NITROFURANTOIN [Concomitant]
     Active Substance: NITROFURANTOIN
     Dosage: 50 MILLIGRAM, QID (SEVEN DAYS)
     Route: 065
     Dates: start: 20220719, end: 20220726
  11. SERTRALINE [Concomitant]
     Active Substance: SERTRALINE HYDROCHLORIDE
     Dosage: 2 DOSAGE FORM, QD
     Route: 065
     Dates: start: 20220628
  12. OLODATEROL HYDROCHLORIDE\TIOTROPIUM BROMIDE MONOHYDRATE [Concomitant]
     Active Substance: OLODATEROL HYDROCHLORIDE\TIOTROPIUM BROMIDE MONOHYDRATE
     Dosage: 2 DOSAGE FORM, QD (PUFFS)
     Route: 065
     Dates: start: 20220725
  13. BECLOMETHASONE DIPROPIONATE\FORMOTEROL FUMARATE\GLYCOPYRROLATE [Concomitant]
     Active Substance: BECLOMETHASONE DIPROPIONATE\FORMOTEROL FUMARATE\GLYCOPYRROLATE
     Dosage: 2 DOSAGE FORM, BID (PUFFS)
     Route: 065
     Dates: start: 20220126, end: 20220725
  14. THEOPHYLLINE ANHYDROUS [Concomitant]
     Active Substance: THEOPHYLLINE ANHYDROUS
     Dosage: 1 DOSAGE FORM, BID
     Route: 065
     Dates: start: 20220127
  15. VENTOLIN [Concomitant]
     Active Substance: ALBUTEROL SULFATE
     Dosage: 2 DOSAGE FORM, PRN (PUFFS)
     Route: 065
     Dates: start: 20220530

REACTIONS (4)
  - Oral mucosal blistering [Recovering/Resolving]
  - Bronchospasm [Unknown]
  - Erythema [Unknown]
  - Throat tightness [Unknown]

NARRATIVE: CASE EVENT DATE: 20220830
